FAERS Safety Report 7546305-7 (Version None)
Quarter: 2011Q2

REPORT INFORMATION
  Report Type: 
  Country: None (occurrence: None)
  Receive Date: 20110614
  Receipt Date: 20040423
  Transmission Date: 20111010
  Serious: Yes (Other)
  Sender: FDA-Public Use
  Company Number: PHFR2004GB00482

PATIENT
  Sex: Female
  Weight: 64 kg

DRUGS (2)
  1. AMITRIPTYLINE HYDROCHLORIDE [Concomitant]
     Indication: DEPRESSION
     Dosage: 150 MG/DAY
     Route: 048
  2. CLOZAPINE [Suspect]
     Indication: SCHIZOPHRENIA
     Dosage: 525 MG, QD
     Route: 048
     Dates: start: 19921210, end: 20040405

REACTIONS (4)
  - NON-HODGKIN'S LYMPHOMA [None]
  - EAR INFECTION [None]
  - NECK MASS [None]
  - LYMPHADENOPATHY [None]
